FAERS Safety Report 6524749-X (Version None)
Quarter: 2009Q4

REPORT INFORMATION
  Report Type: 
  Country: None (occurrence: None)
  Receive Date: 20091214
  Receipt Date: 20090611
  Transmission Date: 20100525
  Serious: Yes (Hospitalization)
  Sender: FDA-Public Use
  Company Number: 638079

PATIENT
  Age: 27 Year
  Sex: Male
  Weight: 110.7 kg

DRUGS (2)
  1. PEGASYS [Suspect]
     Indication: HEPATITIS C
     Dosage: 180 UG 1 PER WEEK SUBCUTANEOUS
     Route: 058
     Dates: start: 20090116
  2. RIBAVIRIN [Suspect]
     Indication: HEPATITIS C
     Dosage: 1200 MG DAILY ORAL
     Route: 048
     Dates: start: 20090116

REACTIONS (4)
  - ABDOMINAL PAIN [None]
  - EJECTION FRACTION ABNORMAL [None]
  - HEPATOBILIARY SCAN ABNORMAL [None]
  - RASH [None]
